FAERS Safety Report 15492370 (Version 1)
Quarter: 2018Q4

REPORT INFORMATION
  Report Type: Spontaneous
  Country: FR (occurrence: FR)
  Receive Date: 20181012
  Receipt Date: 20181012
  Transmission Date: 20190205
  Serious: Yes (Hospitalization)
  Sender: FDA-Public Use
  Company Number: FR-ZYDUS-029027

PATIENT
  Age: 32 Year
  Sex: Female
  Weight: 47 kg

DRUGS (8)
  1. DUPIXENT [Suspect]
     Active Substance: DUPILUMAB
     Indication: DERMATITIS ATOPIC
     Dosage: CYCLICAL
     Route: 058
     Dates: start: 20171120, end: 20180409
  2. VALACICLOVIR [Suspect]
     Active Substance: VALACYCLOVIR HYDROCHLORIDE
     Indication: HERPES SIMPLEX
     Route: 048
     Dates: start: 2017
  3. SODIUM (N ACETYL L ASPARTYL L GLUTAMATE DE) [Suspect]
     Active Substance: SPAGLUMATE SODIUM
     Indication: CONJUNCTIVITIS
     Dosage: ()
     Route: 047
     Dates: start: 2017
  4. FOSFOMYCIN [Concomitant]
     Active Substance: FOSFOMYCIN
     Indication: URINARY TRACT INFECTION
     Route: 048
     Dates: start: 20180517, end: 20180517
  5. IBUPROFEN. [Suspect]
     Active Substance: IBUPROFEN
     Indication: URINARY TRACT INFECTION
     Route: 048
     Dates: start: 20180517
  6. MONAZOL [Concomitant]
     Active Substance: SERTACONAZOLE NITRATE
     Indication: CANDIDA INFECTION
     Dates: start: 20180516, end: 20180516
  7. ZYRTEC [Suspect]
     Active Substance: CETIRIZINE HYDROCHLORIDE
     Indication: DERMATITIS ATOPIC
     Dosage: 10 MG, ORODISPERSIBLE TABLET
     Route: 048
     Dates: start: 2017
  8. NITROFURANTOIN. [Concomitant]
     Active Substance: NITROFURANTOIN
     Indication: URINARY TRACT INFECTION
     Route: 048
     Dates: start: 20180517, end: 20180522

REACTIONS (1)
  - Abortion spontaneous [Not Recovered/Not Resolved]

NARRATIVE: CASE EVENT DATE: 20180612
